FAERS Safety Report 21579711 (Version 1)
Quarter: 2022Q4

REPORT INFORMATION
  Report Type: Spontaneous
  Country: US (occurrence: None)
  Receive Date: 20221110
  Receipt Date: 20221110
  Transmission Date: 20230112
  Serious: Yes (Other)
  Sender: FDA-Public Use
  Company Number: None

PATIENT
  Age: 51 Year
  Sex: Male
  Weight: 96.75 kg

DRUGS (5)
  1. ROMAN HAIR REGROWTH TREATMENT - MINOXIDIL TOPICAL SOLUTION USP, 5% [Suspect]
     Active Substance: MINOXIDIL
     Indication: Hair disorder
     Dosage: OTHER QUANTITY : 1 DROP(S);?FREQUENCY : TWICE A DAY;?
     Route: 061
     Dates: start: 20221008, end: 20221008
  2. Bupropion HCL SR 150 MG (2/day) [Concomitant]
  3. Atvorstatin 10 MG [Concomitant]
  4. Finasteride 1 MG [Concomitant]
  5. Clindamycin HCL 300 MG (every 6 hours) [Concomitant]

REACTIONS (4)
  - Blister [None]
  - Skin weeping [None]
  - Swelling [None]
  - Pain [None]

NARRATIVE: CASE EVENT DATE: 20221108
